FAERS Safety Report 12126560 (Version 1)
Quarter: 2016Q1

REPORT INFORMATION
  Report Type: Spontaneous
  Country: US (occurrence: US)
  Receive Date: 20160229
  Receipt Date: 20160229
  Transmission Date: 20160526
  Serious: Yes (Hospitalization, Other)
  Sender: FDA-Public Use
  Company Number: US-PFIZER INC-2016115549

PATIENT
  Sex: Female

DRUGS (1)
  1. EFFEXOR XR [Suspect]
     Active Substance: VENLAFAXINE HYDROCHLORIDE
     Dosage: UNK

REACTIONS (5)
  - Gastrointestinal disorder [Unknown]
  - Gastric haemorrhage [Unknown]
  - Drug dependence [Unknown]
  - Lung neoplasm malignant [Unknown]
  - Drug withdrawal syndrome [Unknown]
